FAERS Safety Report 24729436 (Version 1)
Quarter: 2024Q4

REPORT INFORMATION
  Report Type: Spontaneous
  Country: DE (occurrence: DE)
  Receive Date: 20241213
  Receipt Date: 20241213
  Transmission Date: 20250114
  Serious: Yes (Other)
  Sender: TEVA
  Company Number: DE-TEVA-VS-3273416

PATIENT
  Age: 72 Year
  Sex: Female

DRUGS (1)
  1. BISOPROLOL [Suspect]
     Active Substance: BISOPROLOL
     Indication: Product used for unknown indication
     Dosage: RATIOPHARM 1,25 MG TABLETTEN
     Route: 048

REACTIONS (3)
  - Angiopathy [Unknown]
  - Hypoaesthesia [Unknown]
  - Peripheral coldness [Unknown]
